FAERS Safety Report 6795243-6 (Version None)
Quarter: 2010Q2

REPORT INFORMATION
  Report Type: 
  Country: None (occurrence: None)
  Receive Date: 20100625
  Receipt Date: 20100616
  Transmission Date: 20101027
  Serious: Yes (Hospitalization, Disabling)
  Sender: FDA-Public Use
  Company Number: DE-ASTRAZENECA-2010SE25290

PATIENT
  Sex: Male

DRUGS (6)
  1. SEROQUEL [Suspect]
     Indication: DEPRESSION
     Route: 048
     Dates: start: 20060607, end: 20070415
  2. SEROQUEL [Interacting]
     Indication: SCHIZOAFFECTIVE DISORDER
     Route: 048
     Dates: start: 20060607, end: 20070415
  3. SEROQUEL [Interacting]
     Route: 048
     Dates: start: 20070416, end: 20071025
  4. SEROQUEL [Interacting]
     Route: 048
     Dates: start: 20070416, end: 20071025
  5. RISPERDAL [Interacting]
     Indication: SCHIZOAFFECTIVE DISORDER
     Route: 048
     Dates: start: 20061030, end: 20071025
  6. RISPERDAL [Interacting]
     Indication: DEPRESSION
     Route: 048
     Dates: start: 20061030, end: 20071025

REACTIONS (3)
  - DRUG INTERACTION [None]
  - PEYRONIE'S DISEASE [None]
  - PRIAPISM [None]
